FAERS Safety Report 9032485 (Version 1)
Quarter: 2013Q1

REPORT INFORMATION
  Report Type: Spontaneous
  Country: ES (occurrence: None)
  Receive Date: 20130108
  Receipt Date: 20130108
  Transmission Date: 20140127
  Serious: Yes (Hospitalization)
  Sender: FDA-Public Use
  Company Number: MPS1-1000902

PATIENT
  Sex: Male
  Weight: 35 kg

DRUGS (10)
  1. ALDURAZYME (LARONIDASE) CONCENTRATE FOR SOLUTION FOR INFUSION [Suspect]
     Indication: MUCOPOLYSACCHARIDOSIS I
     Route: 042
     Dates: start: 2003
  2. FLIXOTIDE (FLUTICASONE PROPIONATE) [Concomitant]
  3. VENTOLIN (SALBUTAMOL SULFATE) [Concomitant]
  4. LUMINAL (PHENOBARBITAL SODIUM) [Concomitant]
  5. KEPPRA (LEVETIRACETAM) [Concomitant]
  6. URSOCHOL (URSODEOXYCHOLIC ACID) [Concomitant]
  7. MOTILIUM (DOMPERIDONE MALEATE) [Concomitant]
  8. OMEPRAZOLE (OMEPRAZOLE) [Concomitant]
  9. XALATAN (LATANOPROST) [Concomitant]
  10. SEGURIL (FUROSEMIDE) [Concomitant]

REACTIONS (3)
  - Acute respiratory failure [None]
  - Infection [None]
  - Umbilical hernia repair [None]
